FAERS Safety Report 7374433-8 (Version None)
Quarter: 2011Q1

REPORT INFORMATION
  Report Type: 
  Country: None (occurrence: None)
  Receive Date: 20110317
  Receipt Date: 20110307
  Transmission Date: 20110831
  Serious: Yes (Death)
  Sender: FDA-Public Use
  Company Number: 2011EN000072

PATIENT
  Age: 14 Year
  Sex: Female
  Weight: 40.7 kg

DRUGS (18)
  1. CYTARABINE [Suspect]
     Indication: ACUTE LYMPHOCYTIC LEUKAEMIA
     Dosage: 70 MG; X1; INTH; IV; 800 MG; IV
     Route: 037
     Dates: start: 20100722, end: 20100722
  2. CYTARABINE [Suspect]
     Indication: ACUTE LYMPHOCYTIC LEUKAEMIA
     Dosage: 70 MG; X1; INTH; IV; 800 MG; IV
     Route: 037
     Dates: start: 20110211, end: 20110221
  3. CYTARABINE [Suspect]
     Indication: ACUTE LYMPHOCYTIC LEUKAEMIA
     Dosage: 70 MG; X1; INTH; IV; 800 MG; IV
     Route: 037
     Dates: end: 20101004
  4. THIOGUANINE [Suspect]
     Indication: ACUTE LYMPHOCYTIC LEUKAEMIA
     Dosage: 1120 MG; PO
     Route: 048
     Dates: start: 20110211, end: 20110224
  5. DEXAMETHASONE [Concomitant]
  6. VINCRISTINE [Concomitant]
  7. ONCASPAR [Suspect]
     Indication: ACUTE LYMPHOCYTIC LEUKAEMIA
     Dosage: 6850 IU; X1; IV
     Route: 042
     Dates: start: 20110117, end: 20110224
  8. EZN-2285 [Suspect]
     Indication: ACUTE LYMPHOCYTIC LEUKAEMIA
     Dosage: 3100 IU;X1;IV, 6150 IU;X1;IV, 2800 IU;X1;IV
     Route: 042
     Dates: start: 20100901, end: 20101008
  9. EZN-2285 [Suspect]
     Indication: ACUTE LYMPHOCYTIC LEUKAEMIA
     Dosage: 3100 IU;X1;IV, 6150 IU;X1;IV, 2800 IU;X1;IV
     Route: 042
     Dates: start: 20100726, end: 20100726
  10. EZN-2285 [Suspect]
     Indication: ACUTE LYMPHOCYTIC LEUKAEMIA
     Dosage: 3100 IU;X1;IV, 6150 IU;X1;IV, 2800 IU;X1;IV
     Route: 042
     Dates: end: 20101210
  11. CYCLOPHOSPHAMIDE [Suspect]
     Indication: ACUTE LYMPHOCYTIC LEUKAEMIA
     Dosage: IV; IV
     Route: 042
     Dates: start: 20100827, end: 20100827
  12. CYCLOPHOSPHAMIDE [Suspect]
     Indication: ACUTE LYMPHOCYTIC LEUKAEMIA
     Dosage: IV; IV
     Route: 042
     Dates: end: 20100924
  13. DOXORUBICIN [Concomitant]
  14. METHOTREXATE [Suspect]
     Indication: ACUTE LYMPHOCYTIC LEUKAEMIA
     Dosage: 30 MG; X1; INTH; 60 MG; X1;INTH; INTH; 715 MG; IV; 45 MG; INTH
     Route: 037
     Dates: start: 20100827, end: 20100917
  15. METHOTREXATE [Suspect]
     Indication: ACUTE LYMPHOCYTIC LEUKAEMIA
     Dosage: 30 MG; X1; INTH; 60 MG; X1;INTH; INTH; 715 MG; IV; 45 MG; INTH
     Route: 037
     Dates: start: 20101112, end: 20101230
  16. METHOTREXATE [Suspect]
     Indication: ACUTE LYMPHOCYTIC LEUKAEMIA
     Dosage: 30 MG; X1; INTH; 60 MG; X1;INTH; INTH; 715 MG; IV; 45 MG; INTH
     Route: 037
     Dates: start: 20101112, end: 20101230
  17. METHOTREXATE [Suspect]
     Indication: ACUTE LYMPHOCYTIC LEUKAEMIA
     Dosage: 30 MG; X1; INTH; 60 MG; X1;INTH; INTH; 715 MG; IV; 45 MG; INTH
     Route: 037
     Dates: start: 20100701, end: 20100820
  18. METHOTREXATE [Suspect]
     Indication: ACUTE LYMPHOCYTIC LEUKAEMIA
     Dosage: 30 MG; X1; INTH; 60 MG; X1;INTH; INTH; 715 MG; IV; 45 MG; INTH
     Route: 037
     Dates: end: 20110218

REACTIONS (5)
  - HAEMORRHAGE [None]
  - BLINDNESS [None]
  - CYANOSIS [None]
  - NEUTROPHIL COUNT DECREASED [None]
  - PLATELET COUNT DECREASED [None]
